FAERS Safety Report 15274095 (Version 1)
Quarter: 2018Q3

REPORT INFORMATION
  Report Type: Spontaneous
  Country: US (occurrence: US)
  Receive Date: 20180814
  Receipt Date: 20180814
  Transmission Date: 20181010
  Serious: No
  Sender: FDA-Public Use
  Company Number: US-BIOGEN-2018BI00618335

PATIENT
  Age: 40 Year
  Sex: Female

DRUGS (1)
  1. TECFIDERA [Suspect]
     Active Substance: DIMETHYL FUMARATE
     Indication: MULTIPLE SCLEROSIS
     Dosage: MAINTENANCE DOSE
     Route: 048
     Dates: start: 20180806

REACTIONS (8)
  - Chest pain [Unknown]
  - Urticaria [Unknown]
  - Abdominal pain upper [Unknown]
  - Pruritus [Unknown]
  - Hot flush [Not Recovered/Not Resolved]
  - Rhinorrhoea [Unknown]
  - Muscle spasms [Unknown]
  - Swollen tongue [Unknown]

NARRATIVE: CASE EVENT DATE: 20180806
